FAERS Safety Report 6297787-2 (Version None)
Quarter: 2009Q3

REPORT INFORMATION
  Report Type: 
  Country: None (occurrence: None)
  Receive Date: 20090804
  Receipt Date: 20090804
  Transmission Date: 20100115
  Serious: No
  Sender: FDA-Public Use
  Company Number: None

PATIENT
  Age: 33 Year
  Sex: Female
  Weight: 88.4514 kg

DRUGS (1)
  1. ACYCLOVIR [Suspect]
     Indication: GENITAL HERPES
     Dosage: TWO CAPSULES, TWICE DAILY, PO
     Route: 048
     Dates: start: 20090728, end: 20090802

REACTIONS (6)
  - BURNING SENSATION [None]
  - CHEILITIS [None]
  - DRUG HYPERSENSITIVITY [None]
  - LIP DRY [None]
  - LIP PAIN [None]
  - PRODUCT SUBSTITUTION ISSUE [None]
